FAERS Safety Report 16782591 (Version 3)
Quarter: 2020Q2

REPORT INFORMATION
  Report Type: Report from Study
  Country: US (occurrence: US)
  Receive Date: 20190906
  Receipt Date: 20200414
  Transmission Date: 20200713
  Serious: Yes (Death, Hospitalization, Other)
  Sender: FDA-Public Use
  Company Number: US-ACTELION-A-NJ2019-194436

PATIENT
  Age: 68 Year
  Sex: Female
  Weight: 82.09 kg

DRUGS (27)
  1. SILDENAFIL. [Suspect]
     Active Substance: SILDENAFIL
     Indication: PRODUCT USED FOR UNKNOWN INDICATION
     Dosage: 20 MG, TID
     Route: 065
     Dates: start: 201906
  2. COUMADIN [Concomitant]
     Active Substance: WARFARIN SODIUM
  3. SYMBICORT [Concomitant]
     Active Substance: BUDESONIDE\FORMOTEROL FUMARATE DIHYDRATE
  4. PRISTIQ EXTENDED-RELEASE [Concomitant]
     Active Substance: DESVENLAFAXINE SUCCINATE
     Dosage: 100 MG, QD
  5. CLARITIN [Concomitant]
     Active Substance: LORATADINE
     Dosage: 10 MG, PRN
  6. ULTRAM [Concomitant]
     Active Substance: TRAMADOL HYDROCHLORIDE
  7. OPSUMIT [Suspect]
     Active Substance: MACITENTAN
     Indication: PULMONARY ARTERIAL HYPERTENSION
     Dosage: 10 MG
     Route: 048
     Dates: start: 20190628, end: 20200309
  8. LASIX [Concomitant]
     Active Substance: FUROSEMIDE
  9. EZETIMIBE. [Concomitant]
     Active Substance: EZETIMIBE
     Dosage: 10 MG, QD
     Route: 048
  10. OMEPRAZOLE. [Concomitant]
     Active Substance: OMEPRAZOLE
     Dosage: 40 MG, QD
  11. RENVELA [Concomitant]
     Active Substance: SEVELAMER CARBONATE
     Dosage: 800 MG
  12. CRESTOR [Concomitant]
     Active Substance: ROSUVASTATIN CALCIUM
  13. CHOLECALCIFEROL [Concomitant]
     Active Substance: CHOLECALCIFEROL
     Dosage: 2000 U, QD
  14. LISINOPRIL. [Concomitant]
     Active Substance: LISINOPRIL
  15. SPIRIVA [Concomitant]
     Active Substance: TIOTROPIUM BROMIDE MONOHYDRATE
  16. CARVEDILOL. [Concomitant]
     Active Substance: CARVEDILOL
     Dosage: 3.125 MG, BID
  17. SINGULAIR [Concomitant]
     Active Substance: MONTELUKAST SODIUM
     Dosage: 10 MG, PRN
     Route: 048
  18. COZAAR [Concomitant]
     Active Substance: LOSARTAN POTASSIUM
  19. CALCITRIOL. [Concomitant]
     Active Substance: CALCITRIOL
     Dosage: 0.25 MCG, QD
  20. LEVEMIR [Concomitant]
     Active Substance: INSULIN DETEMIR
     Dosage: 145 MG, QD
  21. PRASUGREL. [Concomitant]
     Active Substance: PRASUGREL
     Dosage: 10 MG, QD
  22. TYLENOL [Concomitant]
     Active Substance: ACETAMINOPHEN
     Dosage: 650 MG, Q6HRS
     Route: 048
  23. ALBUTEROL. [Concomitant]
     Active Substance: ALBUTEROL
  24. SILDENAFIL. [Suspect]
     Active Substance: SILDENAFIL
     Dosage: 20 MG, QD
     Route: 065
     Dates: start: 201906
  25. TRICOR [Concomitant]
     Active Substance: FENOFIBRATE
  26. OXYGEN. [Concomitant]
     Active Substance: OXYGEN
  27. NEPHRO VITE RX [Concomitant]
     Active Substance: ASCORBIC ACID\BIOTIN\CALCIUM PANTOTHENATE\CYANOCOBALAMIN\FOLIC ACID\NIACINAMIDE\PYRIDOXINE HYDROCHLORIDE\RIBOFLAVIN\THIAMINE MONONITRATE
     Dosage: 0.8 MG, QD

REACTIONS (41)
  - Arrhythmia [Fatal]
  - End stage renal disease [Unknown]
  - Arthritis [Unknown]
  - Coronary artery disease [Unknown]
  - Stasis dermatitis [Unknown]
  - Tricuspid valve incompetence [Unknown]
  - Aortic valve incompetence [Unknown]
  - Hypoxia [Unknown]
  - Jugular vein thrombosis [Unknown]
  - Fluid overload [Unknown]
  - Cardiac failure congestive [Unknown]
  - Mitral valve incompetence [Unknown]
  - Sleep apnoea syndrome [Unknown]
  - Dependence on oxygen therapy [Unknown]
  - Type 2 diabetes mellitus [Unknown]
  - Angioplasty [Unknown]
  - Aortic stenosis [Unknown]
  - Bundle branch block left [Unknown]
  - Troponin increased [Unknown]
  - Arteriovenous fistula operation [Unknown]
  - Depression [Unknown]
  - Overweight [Unknown]
  - Pulmonary hypertension [Fatal]
  - Rhinitis allergic [Unknown]
  - Anxiety [Unknown]
  - Hypersomnia [Unknown]
  - Acute kidney injury [Unknown]
  - Respiratory failure [Unknown]
  - Treatment noncompliance [Unknown]
  - Dyslipidaemia [Unknown]
  - Carotid artery stenosis [Unknown]
  - Chronic kidney disease [Unknown]
  - Fatigue [Unknown]
  - Asthma [Unknown]
  - Hyperlipidaemia [Unknown]
  - Jugular vein embolism [Unknown]
  - Chronic respiratory failure [Unknown]
  - Dyspnoea exertional [Unknown]
  - Platelet dysfunction [Unknown]
  - Peripheral venous disease [Unknown]
  - Dyspnoea [Unknown]

NARRATIVE: CASE EVENT DATE: 201908
